FAERS Safety Report 5534542-2 (Version None)
Quarter: 2007Q4

REPORT INFORMATION
  Report Type: 
  Country: None (occurrence: None)
  Receive Date: 20071205
  Receipt Date: 20071121
  Transmission Date: 20080405
  Serious: Yes (Other)
  Sender: FDA-Public Use
  Company Number: US-AMGEN-US254480

PATIENT
  Age: 14 Year
  Sex: Male

DRUGS (3)
  1. ENBREL [Suspect]
     Indication: PAROPHTHALMIA
     Route: 058
  2. PREDNISOLONE [Concomitant]
     Indication: PAROPHTHALMIA
     Dosage: 2-6 MG/DAY
  3. METHOTREXATE [Concomitant]
     Indication: PAROPHTHALMIA
     Dosage: 12.5-17.5 MG/WEEK

REACTIONS (1)
  - OPTIC NEURITIS [None]
